FAERS Safety Report 17597099 (Version 1)
Quarter: 2020Q1

REPORT INFORMATION
  Report Type: Spontaneous
  Country: FR (occurrence: FR)
  Receive Date: 20200330
  Receipt Date: 20200330
  Transmission Date: 20200409
  Serious: Yes (Hospitalization)
  Sender: FDA-Public Use
  Company Number: FR-TEVA-2020-FR-1211380

PATIENT
  Age: 62 Year
  Sex: Female
  Weight: 55 kg

DRUGS (1)
  1. FURADANTINE 50 MG, G?LULE [Suspect]
     Active Substance: NITROFURANTOIN
     Indication: URINARY TRACT INFECTION
     Dosage: 3 DOSAGE FORM
     Route: 048
     Dates: start: 20200226, end: 20200301

REACTIONS (4)
  - Rash pruritic [Not Recovered/Not Resolved]
  - Oesophageal pain [Recovered/Resolved]
  - Cough [Recovered/Resolved]
  - Erythema [Not Recovered/Not Resolved]

NARRATIVE: CASE EVENT DATE: 20200226
